FAERS Safety Report 15734777 (Version 1)
Quarter: 2018Q4

REPORT INFORMATION
  Report Type: Spontaneous
  Country: CA (occurrence: CA)
  Receive Date: 20181218
  Receipt Date: 20181218
  Transmission Date: 20190205
  Serious: Yes (Other)
  Sender: FDA-Public Use
  Company Number: CA-PFIZER INC-2018520622

PATIENT
  Age: 61 Year
  Sex: Female

DRUGS (4)
  1. ORENCIA [Suspect]
     Active Substance: ABATACEPT
     Dosage: 125 MG, QWK
     Route: 058
  2. HUMIRA [Suspect]
     Active Substance: ADALIMUMAB
     Dosage: UNK
     Route: 058
  3. METHOTREXATE SODIUM. [Suspect]
     Active Substance: METHOTREXATE SODIUM
     Dosage: UNK
  4. ENBREL [Suspect]
     Active Substance: ETANERCEPT
     Dosage: UNK

REACTIONS (8)
  - Alopecia [Recovered/Resolved with Sequelae]
  - Localised infection [Recovered/Resolved with Sequelae]
  - Nodule [Recovered/Resolved with Sequelae]
  - Sciatica [Recovered/Resolved with Sequelae]
  - Demyelination [Recovered/Resolved with Sequelae]
  - Psoriasis [Recovered/Resolved with Sequelae]
  - Rheumatoid arthritis [Recovered/Resolved with Sequelae]
  - Drug effect incomplete [Recovered/Resolved with Sequelae]
